FAERS Safety Report 18853215 (Version 2)
Quarter: 2021Q1

REPORT INFORMATION
  Report Type: Spontaneous
  Country: GB (occurrence: GB)
  Receive Date: 20210205
  Receipt Date: 20210219
  Transmission Date: 20210420
  Serious: Yes (Death, Other)
  Sender: FDA-Public Use
  Company Number: CH-009507513-2102CHE001392

PATIENT
  Sex: Female

DRUGS (2)
  1. MIRTAZAPINE. [Suspect]
     Active Substance: MIRTAZAPINE
     Dosage: UNK
     Dates: start: 201402, end: 20140917
  2. MIRTAZAPINE. [Suspect]
     Active Substance: MIRTAZAPINE
     Indication: ANTIDEPRESSANT THERAPY
     Dosage: 15 MILLIGRAM
     Route: 048
     Dates: start: 2000

REACTIONS (14)
  - Activation syndrome [Unknown]
  - Sleep disorder [Unknown]
  - Multiple chemical sensitivity [Unknown]
  - Hypersomnia [Unknown]
  - Drug withdrawal syndrome [Unknown]
  - Completed suicide [Fatal]
  - General symptom [Unknown]
  - Adverse drug reaction [Unknown]
  - Depression [Unknown]
  - Decreased appetite [Unknown]
  - Adverse event [Unknown]
  - Depersonalisation/derealisation disorder [Unknown]
  - Dyskinesia [Unknown]
  - Akathisia [Unknown]

NARRATIVE: CASE EVENT DATE: 20200815
